FAERS Safety Report 4626040-5 (Version None)
Quarter: 2005Q1

REPORT INFORMATION
  Report Type: 
  Country: None (occurrence: None)
  Receive Date: 20050330
  Receipt Date: 20050310
  Transmission Date: 20050727
  Serious: Yes (Hospitalization, Other)
  Sender: FDA-Public Use
  Company Number: USA050392971

PATIENT
  Age: 62 Year
  Sex: Female
  Weight: 42 kg

DRUGS (19)
  1. GLUCAGON [Suspect]
     Dates: start: 19720101
  2. PROZAC [Suspect]
  3. IMURAN [Concomitant]
  4. PROGRAF [Concomitant]
  5. TRIMETHOPRIM + SULFAMETHOXAZOLE [Concomitant]
  6. SYNTHROID [Concomitant]
  7. FLORINEF (GLUDROCORTISONE ACETATE) [Concomitant]
  8. SODIUM BICARBONATE [Concomitant]
  9. AMITRIPTYLINE HCL TAB [Concomitant]
  10. VITAMIN B-12 [Concomitant]
  11. ASPIRIN [Concomitant]
  12. NEURONTIN (GABAPENTIN PFIZER) [Concomitant]
  13. PLAVIX [Concomitant]
  14. FOSAMAX (ALANDRONATE SODIUM) [Concomitant]
  15. ATIVAN [Concomitant]
  16. LASIX [Concomitant]
  17. KAYEXALATE [Concomitant]
  18. LANTUS [Concomitant]
  19. NOVOLOG [Concomitant]

REACTIONS (15)
  - BLOOD GLUCOSE INCREASED [None]
  - BLOOD POTASSIUM INCREASED [None]
  - BLOOD PRESSURE DECREASED [None]
  - CEREBROVASCULAR ACCIDENT [None]
  - COMA [None]
  - CONVULSION [None]
  - DIABETES MELLITUS [None]
  - HALLUCINATION [None]
  - HIP ARTHROPLASTY [None]
  - HYPERHIDROSIS [None]
  - MYOCARDIAL INFARCTION [None]
  - PHARMACEUTICAL PRODUCT COMPLAINT [None]
  - RENAL IMPAIRMENT [None]
  - RENAL TRANSPLANT [None]
  - SCREAMING [None]
